FAERS Safety Report 16607497 (Version 1)
Quarter: 2019Q3

REPORT INFORMATION
  Report Type: Spontaneous
  Country: US (occurrence: US)
  Receive Date: 20190722
  Receipt Date: 20190722
  Transmission Date: 20191004
  Serious: No
  Sender: FDA-Public Use
  Company Number: US-AMGEN-USASP2019113926

PATIENT
  Sex: Female

DRUGS (3)
  1. XGEVA [Suspect]
     Active Substance: DENOSUMAB
     Indication: OSTEOPOROSIS
     Dosage: UNK, QMO
     Route: 058
     Dates: start: 2016
  2. LETROZOLE. [Concomitant]
     Active Substance: LETROZOLE
     Indication: BREAST CANCER METASTATIC
     Dosage: 2.5 MILLIGRAM, QD
     Route: 048
     Dates: start: 201601
  3. IBRANCE [Concomitant]
     Active Substance: PALBOCICLIB
     Indication: BREAST CANCER METASTATIC
     Dosage: 125 MILLIGRAM (ONCE DAILY FOR 21 DAYS AND OFF 7 DAYS), QD
     Route: 048
     Dates: start: 201601

REACTIONS (12)
  - Chest pain [Unknown]
  - Pain in jaw [Unknown]
  - Tremor [Unknown]
  - White blood cell count decreased [Recovered/Resolved]
  - Blood calcium decreased [Recovering/Resolving]
  - Nervousness [Unknown]
  - Off label use [Unknown]
  - Dental caries [Unknown]
  - Blood magnesium decreased [Unknown]
  - Anxiety [Unknown]
  - Blood potassium decreased [Unknown]
  - Body height decreased [Unknown]

NARRATIVE: CASE EVENT DATE: 2019
